FAERS Safety Report 5064889-8 (Version None)
Quarter: 2006Q3

REPORT INFORMATION
  Report Type: 
  Country: None (occurrence: None)
  Receive Date: 20060725
  Receipt Date: 20060706
  Transmission Date: 20061208
  Serious: Yes (Other)
  Sender: FDA-Public Use
  Company Number: US200603004368

PATIENT
  Age: 35 Year
  Sex: Male
  Weight: 90.7 kg

DRUGS (1)
  1. CYMBALTA [Suspect]
     Indication: ANXIETY
     Dosage: 60 MG, DAILY (1/D)
     Dates: start: 20051201

REACTIONS (2)
  - ALCOHOL USE [None]
  - BLOOD BILIRUBIN INCREASED [None]
